FAERS Safety Report 6981357-4 (Version None)
Quarter: 2010Q3

REPORT INFORMATION
  Report Type: 
  Country: None (occurrence: None)
  Receive Date: 20100914
  Receipt Date: 20100906
  Transmission Date: 20110219
  Serious: Yes (Life-Threatening, Hospitalization)
  Sender: FDA-Public Use
  Company Number: DE-CEPHALON-2010004873

PATIENT
  Sex: Female
  Weight: 86 kg

DRUGS (2)
  1. TREANDA [Suspect]
     Indication: B-CELL LYMPHOMA
     Route: 042
     Dates: start: 20100112, end: 20100113
  2. RITUXIMAB [Suspect]
     Indication: B-CELL LYMPHOMA
     Dates: start: 20100111, end: 20100111

REACTIONS (2)
  - CANDIDIASIS [None]
  - PNEUMONIA [None]
